FAERS Safety Report 20657512 (Version 1)
Quarter: 2022Q1

REPORT INFORMATION
  Report Type: Spontaneous
  Country: CA (occurrence: CA)
  Receive Date: 20220331
  Receipt Date: 20220331
  Transmission Date: 20220423
  Serious: Yes (Life-Threatening, Hospitalization)
  Sender: FDA-Public Use
  Company Number: CA-TEVA-2022-CA-2022042

PATIENT
  Age: 70 Year
  Sex: Female
  Weight: 70 kg

DRUGS (25)
  1. PANTOPRAZOLE [Suspect]
     Active Substance: PANTOPRAZOLE
     Indication: Haematoma infection
     Route: 065
  2. PIPERACILLIN SODIUM\TAZOBACTAM SODIUM [Suspect]
     Active Substance: PIPERACILLIN SODIUM\TAZOBACTAM SODIUM
     Indication: Haematoma infection
     Dosage: 12 GRAM DAILY;
     Route: 042
  3. PIPERACILLIN SODIUM\TAZOBACTAM SODIUM [Suspect]
     Active Substance: PIPERACILLIN SODIUM\TAZOBACTAM SODIUM
     Dosage: 12 GRAM DAILY;
     Route: 042
  4. VANCOMYCIN [Suspect]
     Active Substance: VANCOMYCIN
     Indication: Haematoma infection
     Route: 065
  5. ACETAMINOPHEN [Concomitant]
     Active Substance: ACETAMINOPHEN
  6. BISOPROLOL [Concomitant]
     Active Substance: BISOPROLOL
     Route: 065
  7. BUPROPION [Concomitant]
     Active Substance: BUPROPION
     Route: 065
  8. CALCIUM CITRATE [Concomitant]
     Active Substance: CALCIUM CITRATE
  9. DAPTOMYCIN [Concomitant]
     Active Substance: DAPTOMYCIN
  10. DIMENHYDRINATE [Concomitant]
     Active Substance: DIMENHYDRINATE
  11. DOXYCYCLINE [Concomitant]
     Active Substance: DOXYCYCLINE
  12. FAMOTIDINE [Concomitant]
     Active Substance: FAMOTIDINE
  13. LOPERAMIDE [Concomitant]
     Active Substance: LOPERAMIDE
  14. LORAZEPAM [Concomitant]
     Active Substance: LORAZEPAM
     Route: 065
  15. METRONIDAZOLE [Concomitant]
     Active Substance: METRONIDAZOLE
  16. MORPHINE [Concomitant]
     Active Substance: MORPHINE
  17. ONDANSETRON [Concomitant]
     Active Substance: ONDANSETRON
  18. PANCRELIPASE [Concomitant]
     Active Substance: PANCRELIPASE
  19. PERINDOPRIL [Concomitant]
     Active Substance: PERINDOPRIL
  20. PREGABALIN [Concomitant]
     Active Substance: PREGABALIN
  21. ROSUVASTATIN [Concomitant]
     Active Substance: ROSUVASTATIN
     Route: 058
  22. VITAMIN A [Concomitant]
     Active Substance: VITAMIN A
  23. VITAMIN B12 [Concomitant]
     Active Substance: CYANOCOBALAMIN
  24. VITAMIN K [Concomitant]
     Active Substance: PHYTONADIONE
  25. WARFARIN [Concomitant]
     Active Substance: WARFARIN

REACTIONS (4)
  - Acute kidney injury [Unknown]
  - Dehydration [Unknown]
  - Drug reaction with eosinophilia and systemic symptoms [Unknown]
  - Rash [Unknown]
